FAERS Safety Report 8715569 (Version 2)
Quarter: 2013Q1

REPORT INFORMATION
  Report Type: Spontaneous
  Country: US (occurrence: US)
  Receive Date: 20120809
  Receipt Date: 20130205
  Transmission Date: 20140127
  Serious: Yes (Other)
  Sender: FDA-Public Use
  Company Number: US-JNJFOC-20120701865

PATIENT
  Age: 22 Year
  Sex: Female

DRUGS (7)
  1. TOPAMAX [Suspect]
     Indication: MULTIPLE SCLEROSIS
     Route: 048
     Dates: start: 200504, end: 2011
  2. TOPAMAX [Suspect]
     Indication: CONVULSION
     Route: 048
     Dates: start: 200504, end: 2011
  3. KEPPRA [Suspect]
     Indication: CONVULSION
     Route: 048
     Dates: start: 2007, end: 2011
  4. NEURONTIN [Suspect]
     Indication: MULTIPLE SCLEROSIS
     Route: 048
  5. INTERFERON BETA-1B [Suspect]
     Indication: MULTIPLE SCLEROSIS
     Route: 058
     Dates: start: 2007
  6. CLONAZEPAM [Suspect]
     Indication: MULTIPLE SCLEROSIS
     Route: 048
  7. GYNAZOLE 1 [Suspect]
     Indication: FUNGAL INFECTION
     Route: 065

REACTIONS (5)
  - Depression [Unknown]
  - Exposure during pregnancy [Recovered/Resolved]
  - Premature labour [Recovered/Resolved]
  - Anxiety [Unknown]
  - Stress [Unknown]
